FAERS Safety Report 12525822 (Version 1)
Quarter: 2016Q3

REPORT INFORMATION
  Report Type: Report from Study
  Country: DE (occurrence: DE)
  Receive Date: 20160705
  Receipt Date: 20160705
  Transmission Date: 20161109
  Serious: Yes (Hospitalization)
  Sender: FDA-Public Use
  Company Number: DE-BIOGEN-2016BI00204341

PATIENT
  Age: 22 Year
  Sex: Female
  Weight: 67 kg

DRUGS (2)
  1. MINISISTON [Concomitant]
     Active Substance: ETHINYL ESTRADIOL\LEVONORGESTREL
     Indication: CONTRACEPTION
     Route: 065
  2. AVONEX [Suspect]
     Active Substance: INTERFERON BETA-1A
     Indication: MULTIPLE SCLEROSIS
     Route: 030
     Dates: start: 200511

REACTIONS (11)
  - Arrhythmia [Not Recovered/Not Resolved]
  - Fluid retention [Not Recovered/Not Resolved]
  - Influenza like illness [Recovered/Resolved]
  - Sinusitis [Recovered/Resolved]
  - Progressive relapsing multiple sclerosis [Unknown]
  - Panic attack [Not Recovered/Not Resolved]
  - Drug dependence [Unknown]
  - Bladder dysfunction [Recovered/Resolved]
  - Sleep disorder [Not Recovered/Not Resolved]
  - Multiple sclerosis relapse [Recovered/Resolved with Sequelae]
  - Pain in extremity [Not Recovered/Not Resolved]

NARRATIVE: CASE EVENT DATE: 2005
